FAERS Safety Report 22389663 (Version 1)
Quarter: 2023Q2

REPORT INFORMATION
  Report Type: Spontaneous
  Country: US (occurrence: None)
  Receive Date: 20230529
  Receipt Date: 20230529
  Transmission Date: 20230721
  Serious: Yes (Disabling, Other)
  Sender: FDA-Public Use
  Company Number: None

PATIENT
  Age: 40 Year
  Sex: Male

DRUGS (11)
  1. ABILIFY [Suspect]
     Active Substance: ARIPIPRAZOLE
  2. RISPERDAL [Concomitant]
     Active Substance: RISPERIDONE
  3. DIAZEPAM [Concomitant]
     Active Substance: DIAZEPAM
  4. NEURONTIN [Concomitant]
     Active Substance: GABAPENTIN
  5. LISINOPRIL [Concomitant]
     Active Substance: LISINOPRIL
  6. OMEPRAZOLE [Concomitant]
     Active Substance: OMEPRAZOLE
  7. HERBALS [Concomitant]
     Active Substance: HERBALS
  8. VITAMINS [Concomitant]
     Active Substance: VITAMINS
  9. VITAMIN C [Concomitant]
     Active Substance: ASCORBIC ACID
  10. FISH OIL [Concomitant]
     Active Substance: FISH OIL
  11. SAW PALMETTO [Concomitant]

REACTIONS (1)
  - Inflammation [None]

NARRATIVE: CASE EVENT DATE: 20160201
